FAERS Safety Report 7964240-7 (Version None)
Quarter: 2011Q4

REPORT INFORMATION
  Report Type: 
  Country: None (occurrence: None)
  Receive Date: 20111208
  Receipt Date: 20111205
  Transmission Date: 20120403
  Serious: Yes (Hospitalization)
  Sender: FDA-Public Use
  Company Number: NL-AMGEN-NLDSP2011064593

PATIENT
  Age: 66 Year
  Sex: Male
  Weight: 111 kg

DRUGS (9)
  1. NEUPOGEN [Suspect]
     Indication: DIFFUSE LARGE B-CELL LYMPHOMA
     Dosage: 6 MG, UNK
     Route: 058
     Dates: start: 20100930
  2. RITUXIMAB [Suspect]
     Indication: DIFFUSE LARGE B-CELL LYMPHOMA
     Dosage: 87 MG, UNK
     Route: 042
     Dates: start: 20100929
  3. CYCLOPHOSPHAMIDE [Suspect]
     Indication: DIFFUSE LARGE B-CELL LYMPHOMA
     Dosage: 87 MG, UNK
     Route: 042
     Dates: start: 20100929
  4. ASCAL                              /00800002/ [Concomitant]
     Indication: OPTIC ISCHAEMIC NEUROPATHY
     Dosage: 100 MG, UNK
     Route: 048
     Dates: start: 20030806
  5. ENALAPRIL                          /00574902/ [Concomitant]
     Indication: HYPERTENSION
     Dosage: 20 MG, UNK
     Route: 048
     Dates: start: 20090408
  6. VINCRISTINE [Suspect]
     Indication: DIFFUSE LARGE B-CELL LYMPHOMA
     Dosage: 2 MG, UNK
     Route: 042
     Dates: start: 20100929
  7. PREDNISONE TAB [Suspect]
     Indication: DIFFUSE LARGE B-CELL LYMPHOMA
     Dosage: 100 MG, UNK
     Route: 048
     Dates: start: 20100929
  8. DOXORUBICIN HCL [Suspect]
     Indication: DIFFUSE LARGE B-CELL LYMPHOMA
     Dosage: 58 MG, UNK
     Route: 042
     Dates: start: 20100929
  9. METOPROLOL TARTRATE [Concomitant]
     Indication: HYPERTENSION
     Dosage: 200 MG, UNK
     Route: 048
     Dates: start: 20090408

REACTIONS (3)
  - GRANULOCYTOPENIA [None]
  - CHILLS [None]
  - PYREXIA [None]
